FAERS Safety Report 20542122 (Version 1)
Quarter: 2022Q1

REPORT INFORMATION
  Report Type: Spontaneous
  Country: US (occurrence: US)
  Receive Date: 20220302
  Receipt Date: 20220302
  Transmission Date: 20220423
  Serious: Yes (Other)
  Sender: FDA-Public Use
  Company Number: US-SLATE RUN PHARMACEUTICALS-22US000934

PATIENT

DRUGS (10)
  1. AZITHROMYCIN [Suspect]
     Active Substance: AZITHROMYCIN
     Indication: Maternal exposure during pregnancy
     Dosage: UNK
     Route: 015
  2. OXYGEN [Concomitant]
     Active Substance: OXYGEN
     Indication: Maternal exposure during pregnancy
     Route: 015
  3. DEXAMETHASONE [Concomitant]
     Active Substance: DEXAMETHASONE
     Indication: Maternal therapy to enhance foetal lung maturity
     Route: 015
  4. DEXAMETHASONE [Concomitant]
     Active Substance: DEXAMETHASONE
     Indication: Maternal exposure during pregnancy
  5. REMDESIVIR [Concomitant]
     Active Substance: REMDESIVIR
     Indication: Maternal exposure during pregnancy
     Route: 015
  6. TOCILIZUMAB [Concomitant]
     Active Substance: TOCILIZUMAB
     Indication: Maternal exposure during pregnancy
     Route: 015
  7. CEFTRIAXONE [Concomitant]
     Active Substance: CEFTRIAXONE
     Indication: Maternal exposure during pregnancy
     Route: 015
  8. INSULIN NOS [Concomitant]
     Active Substance: INSULIN NOS
     Indication: Maternal exposure during pregnancy
     Dosage: UNK
     Route: 015
  9. INSULIN NOS [Concomitant]
     Active Substance: INSULIN NOS
     Indication: Maternal exposure during pregnancy
     Dosage: UNK
     Route: 015
  10. DEXTROSE [Concomitant]
     Active Substance: DEXTROSE
     Indication: Maternal exposure during pregnancy
     Route: 015

REACTIONS (3)
  - Premature baby [Unknown]
  - Foetal distress syndrome [Unknown]
  - Foetal exposure during pregnancy [Recovered/Resolved]
